FAERS Safety Report 4369283-0 (Version None)
Quarter: 2004Q2

REPORT INFORMATION
  Report Type: 
  Country: None (occurrence: None)
  Receive Date: 20040601
  Receipt Date: 20040601
  Transmission Date: 20050107
  Serious: Yes (Life-Threatening, Hospitalization)
  Sender: FDA-Public Use
  Company Number: None

PATIENT
  Sex: Female
  Weight: 68.0396 kg

DRUGS (10)
  1. PAXIL [Suspect]
     Indication: DEPRESSION
     Dates: start: 19970101, end: 19990101
  2. PROZAC [Suspect]
  3. EFFEXOR [Suspect]
  4. CELEXA [Suspect]
  5. REMERON [Suspect]
  6. LEXAPRO [Suspect]
  7. SERZONE [Suspect]
  8. WELLBUTRIN [Suspect]
  9. ZOLOFT [Suspect]
  10. SLEEP PILLS [Concomitant]

REACTIONS (9)
  - AGITATION [None]
  - DIARRHOEA [None]
  - INSOMNIA [None]
  - INTENTIONAL OVERDOSE [None]
  - MUSCLE CONTRACTIONS INVOLUNTARY [None]
  - RESTLESSNESS [None]
  - STRESS SYMPTOMS [None]
  - SUICIDAL IDEATION [None]
  - SUICIDE ATTEMPT [None]
